FAERS Safety Report 9843809 (Version 1)
Quarter: 2013Q4

REPORT INFORMATION
  Report Type: Spontaneous
  Country: US (occurrence: None)
  Receive Date: 20131223
  Receipt Date: 20131223
  Transmission Date: 20140711
  Serious: No
  Sender: FDA-Public Use
  Company Number: 1000050203

PATIENT
  Age: 67 Year
  Sex: Female

DRUGS (4)
  1. LINZESS [Suspect]
     Indication: CONSTIPATION
     Dosage: 290 MCG (290 MCG, 1 IN 1 D), ORAL
     Route: 048
     Dates: start: 20131011, end: 20131012
  2. XANAX (ALPRAZOLAM) (ALPRAZOLAM) [Concomitant]
  3. DIAZEPAM (DIAZEPAM) (DIAZEPAM0 [Concomitant]
  4. NEURONTIN (GABAPENTIN) (GABAPENTIN) [Concomitant]

REACTIONS (1)
  - Drug ineffective [None]
